FAERS Safety Report 24387270 (Version 1)
Quarter: 2024Q4

REPORT INFORMATION
  Report Type: Report from Study
  Country: US (occurrence: US)
  Receive Date: 20241002
  Receipt Date: 20241002
  Transmission Date: 20250114
  Serious: Yes (Hospitalization)
  Sender: ABBVIE
  Company Number: US-ABBVIE-5946042

PATIENT
  Age: 51 Year
  Sex: Male

DRUGS (1)
  1. RINVOQ [Suspect]
     Active Substance: UPADACITINIB
     Indication: Colitis ulcerative
     Dosage: FORM STRENGTH: 30 MG
     Route: 048
     Dates: start: 2023, end: 202409

REACTIONS (1)
  - Appendicitis [Unknown]

NARRATIVE: CASE EVENT DATE: 20240924
